FAERS Safety Report 10089036 (Version 1)
Quarter: 2014Q2

REPORT INFORMATION
  Report Type: Spontaneous
  Country: US (occurrence: None)
  Receive Date: 20140418
  Receipt Date: 20140418
  Transmission Date: 20141212
  Serious: Yes (Disabling)
  Sender: FDA-Public Use
  Company Number: None

PATIENT
  Age: 45 Year
  Sex: Male
  Weight: 86.18 kg

DRUGS (4)
  1. MICARDIS 80 MG [Suspect]
     Indication: HYPERTENSION
     Route: 048
     Dates: start: 20110303, end: 20120828
  2. CELEBREX [Concomitant]
  3. FLEXEROL [Concomitant]
  4. ALEVE [Concomitant]

REACTIONS (3)
  - Scar [None]
  - Rash [None]
  - Joint crepitation [None]
